FAERS Safety Report 4296926-2 (Version None)
Quarter: 2004Q1

REPORT INFORMATION
  Report Type: 
  Country: None (occurrence: None)
  Receive Date: 20040213
  Receipt Date: 20040206
  Transmission Date: 20041129
  Serious: No
  Sender: FDA-Public Use
  Company Number: 2004PK00293

PATIENT
  Age: 69 Year
  Sex: Male
  Weight: 84 kg

DRUGS (6)
  1. NEXIUM [Suspect]
     Indication: OESOPHAGEAL STENOSIS
     Dosage: 20-40 MG
     Dates: start: 20031024
  2. NEXIUM [Suspect]
     Indication: OESOPHAGITIS
     Dosage: 20-40 MG
     Dates: start: 20031024
  3. NEXIUM [Suspect]
     Indication: OESOPHAGEAL STENOSIS
     Dosage: 20-40 MG
     Dates: start: 20031118, end: 20031118
  4. NEXIUM [Suspect]
     Indication: OESOPHAGITIS
     Dosage: 20-40 MG
     Dates: start: 20031118, end: 20031118
  5. RANITIDINE [Concomitant]
  6. AGOPTON [Concomitant]

REACTIONS (2)
  - MUSCULAR WEAKNESS [None]
  - MYALGIA [None]
